FAERS Safety Report 25638174 (Version 1)
Quarter: 2025Q3

REPORT INFORMATION
  Report Type: Spontaneous
  Country: JP (occurrence: JP)
  Receive Date: 20250804
  Receipt Date: 20250804
  Transmission Date: 20251021
  Serious: Yes (Other)
  Sender: Phathom Pharmaceuticals
  Company Number: JP-PHATHOM PHARMACEUTICALS INC.-2025PHT02076

PATIENT
  Age: 8 Decade
  Sex: Male

DRUGS (1)
  1. VONOPRAZAN FUMARATE [Suspect]
     Active Substance: VONOPRAZAN FUMARATE
     Indication: Product used for unknown indication
     Route: 065

REACTIONS (1)
  - Urinary retention [Unknown]
